FAERS Safety Report 13949612 (Version 1)
Quarter: 2017Q3

REPORT INFORMATION
  Report Type: Spontaneous
  Country: US (occurrence: US)
  Receive Date: 20170908
  Receipt Date: 20170908
  Transmission Date: 20171128
  Serious: Yes (Hospitalization, Other)
  Sender: FDA-Public Use
  Company Number: US-PFIZER INC-2017388585

PATIENT
  Sex: Male

DRUGS (3)
  1. NORPACE [Suspect]
     Active Substance: DISOPYRAMIDE PHOSPHATE
     Indication: ATRIAL FIBRILLATION
     Dosage: TAKES 200MG NORPACE AT 0800 AND AT 1600 AND 100MG NORPACE AT MIDNIGHT.
     Dates: start: 2014
  2. NORPACE CR [Suspect]
     Active Substance: DISOPYRAMIDE PHOSPHATE
     Indication: ATRIAL FIBRILLATION
     Dosage: 300MG NORPACE CR AT 0800, 200MG NORPACE CR AT 1600 AND 200MG NORPACE CR AT MIDNIGHT.
     Dates: start: 1992
  3. NORPACE CR [Suspect]
     Active Substance: DISOPYRAMIDE PHOSPHATE
     Dosage: TAKES 100MG NORPACE CR AT 0800 AND AT MIDNIGHT

REACTIONS (2)
  - Cerebrovascular accident [Unknown]
  - Intentional product misuse [Not Recovered/Not Resolved]

NARRATIVE: CASE EVENT DATE: 2014
